FAERS Safety Report 5238841-3 (Version None)
Quarter: 2007Q1

REPORT INFORMATION
  Report Type: 
  Country: None (occurrence: None)
  Receive Date: 20070215
  Receipt Date: 20070207
  Transmission Date: 20070707
  Serious: Yes (Hospitalization, Other)
  Sender: FDA-Public Use
  Company Number: AU-PFIZER INC-2007006809

PATIENT
  Sex: Male

DRUGS (1)
  1. SUTENT [Suspect]

REACTIONS (7)
  - BACK PAIN [None]
  - BEDRIDDEN [None]
  - CONJUNCTIVITIS [None]
  - GUILLAIN-BARRE SYNDROME [None]
  - NECK PAIN [None]
  - PAIN IN EXTREMITY [None]
  - ULCER HAEMORRHAGE [None]
